FAERS Safety Report 6049563-3 (Version None)
Quarter: 2009Q1

REPORT INFORMATION
  Report Type: 
  Country: None (occurrence: None)
  Receive Date: 20090123
  Receipt Date: 20090112
  Transmission Date: 20090719
  Serious: Yes (Hospitalization)
  Sender: FDA-Public Use
  Company Number: US-PFIZER INC-2009154967

PATIENT
  Sex: Male
  Weight: 89.796 kg

DRUGS (8)
  1. BLINDED *PLACEBO [Suspect]
     Indication: IDIOPATHIC PULMONARY FIBROSIS
     Dosage: 20 MG, 3X/DAY
     Route: 048
     Dates: start: 20081218
  2. BLINDED SILDENAFIL CITRATE [Suspect]
     Indication: IDIOPATHIC PULMONARY FIBROSIS
     Dosage: 20 MG, 3X/DAY
     Route: 048
     Dates: start: 20081218
  3. METFORMIN HYDROCHLORIDE [Concomitant]
     Indication: DIABETES MELLITUS
     Dosage: UNK
     Dates: start: 20061201
  4. LEVOTHYROXINE [Concomitant]
     Indication: HYPOTHYROIDISM
     Dosage: UNK
     Dates: start: 20060601
  5. PLAVIX [Concomitant]
     Indication: ANTICOAGULANT THERAPY
     Dosage: UNK
     Dates: start: 20060601
  6. SIMVASTATIN [Concomitant]
     Indication: BLOOD CHOLESTEROL INCREASED
     Dosage: UNK
     Dates: start: 20060601
  7. FLUTICASONE [Concomitant]
     Indication: ASTHMA
     Dosage: UNK
     Dates: start: 20060601
  8. GLIPIZIDE [Concomitant]
     Indication: DIABETES MELLITUS
     Dosage: UNK
     Dates: start: 20061201

REACTIONS (1)
  - PNEUMONIA [None]
